FAERS Safety Report 14559339 (Version 1)
Quarter: 2018Q1

REPORT INFORMATION
  Report Type: Spontaneous
  Country: US (occurrence: US)
  Receive Date: 20180221
  Receipt Date: 20180221
  Transmission Date: 20180509
  Serious: Yes (Disabling, Other)
  Sender: FDA-Public Use
  Company Number: US-REGENERON PHARMACEUTICALS, INC.-2018-14471

PATIENT

DRUGS (2)
  1. EYLEA [Suspect]
     Active Substance: AFLIBERCEPT
     Indication: DIABETIC RETINOPATHY
     Dosage: UNK, EVERY 8 WEEKS
     Route: 031
     Dates: start: 20150617
  2. EYLEA [Suspect]
     Active Substance: AFLIBERCEPT
     Indication: MACULAR OEDEMA
     Dosage: UNK, EVERY 8 WEEKS, LAST DOSE
     Route: 031
     Dates: start: 20180131, end: 20180131

REACTIONS (2)
  - Blindness transient [Recovering/Resolving]
  - Non-infectious endophthalmitis [Unknown]

NARRATIVE: CASE EVENT DATE: 20180201
